FAERS Safety Report 18363337 (Version 2)
Quarter: 2020Q4

REPORT INFORMATION
  Report Type: Report from Study
  Country: IE (occurrence: IE)
  Receive Date: 20201008
  Receipt Date: 20201028
  Transmission Date: 20210114
  Serious: Yes (Hospitalization)
  Sender: FDA-Public Use
  Company Number: IE-BAXTER-2020BAX014841

PATIENT
  Age: 65 Year
  Sex: Male

DRUGS (22)
  1. WATER FOR INJECTION [Suspect]
     Active Substance: WATER
     Indication: SHORT-BOWEL SYNDROME
  2. CERNEVIT [Suspect]
     Active Substance: VITAMINS
     Indication: SHORT-BOWEL SYNDROME
  3. WATER FOR TPN [Suspect]
     Active Substance: WATER
     Indication: SHORT-BOWEL SYNDROME
  4. CALCIUM CHLORIDE. [Suspect]
     Active Substance: CALCIUM CHLORIDE
     Indication: PARENTERAL NUTRITION
     Dosage: FREQUENCY: ALTERNATE DAY.
     Route: 042
     Dates: start: 20200527
  5. MAGNESIUM SULPHATE [Suspect]
     Active Substance: MAGNESIUM SULFATE
     Indication: SHORT-BOWEL SYNDROME
  6. GLUCOSE INTRAVENOUS INFUSION BP 50% W/V [Suspect]
     Active Substance: DEXTROSE
     Indication: SHORT-BOWEL SYNDROME
  7. WATER FOR INJECTION [Suspect]
     Active Substance: WATER
     Indication: PARENTERAL NUTRITION
     Dosage: FREQUENCY: ALTERNATE DAY.
     Route: 042
     Dates: start: 20200527
  8. GLUCOSE INTRAVENOUS INFUSION BP 50% W/V [Suspect]
     Active Substance: DEXTROSE
     Indication: PARENTERAL NUTRITION
     Dosage: FREQUENCY: ALTERNATE DAY.
     Route: 042
     Dates: start: 20200527
  9. NUTRYELT CONCENTRATE FOR SOLUTION FOR INFUSION [Suspect]
     Active Substance: IRON\MINERALS\POTASSIUM IOD\SODIUM FLUORIDE\SODIUM MOLYBDATE\SODIUM SELENITE\ZINC
     Indication: PARENTERAL NUTRITION
     Route: 042
     Dates: start: 20200527
  10. WATER FOR TPN [Suspect]
     Active Substance: WATER
     Indication: PARENTERAL NUTRITION
     Dosage: FREQUENCY: ALTERNATE DAY.
     Route: 042
     Dates: start: 20200527
  11. SODIUM CHLORIDE. [Suspect]
     Active Substance: SODIUM CHLORIDE
     Indication: SHORT-BOWEL SYNDROME
  12. SODIUM GLYCEROPHOSPHATE [Suspect]
     Active Substance: SODIUM GLYCEROPHOSPHATE
     Indication: SHORT-BOWEL SYNDROME
  13. CALCIUM CHLORIDE. [Suspect]
     Active Substance: CALCIUM CHLORIDE
     Indication: SHORT-BOWEL SYNDROME
  14. CERNEVIT [Suspect]
     Active Substance: VITAMINS
     Indication: PARENTERAL NUTRITION
     Dosage: FREQUENCY: ALTERNATE DAY.
     Route: 042
     Dates: start: 20200527
  15. NUTRYELT CONCENTRATE FOR SOLUTION FOR INFUSION [Suspect]
     Active Substance: IRON\MINERALS\POTASSIUM IOD\SODIUM FLUORIDE\SODIUM MOLYBDATE\SODIUM SELENITE\ZINC
     Indication: SHORT-BOWEL SYNDROME
  16. SODIUM GLYCEROPHOSPHATE [Suspect]
     Active Substance: SODIUM GLYCEROPHOSPHATE
     Indication: PARENTERAL NUTRITION
     Dosage: FREQUENCY: ALTERNATE DAY.
     Route: 042
     Dates: start: 20200527
  17. SYNTHAMIN [Suspect]
     Active Substance: AMINO ACIDS
     Indication: PARENTERAL NUTRITION
     Dosage: FREQUENCY: ALTERNATE DAY.
     Route: 042
     Dates: start: 20200527
  18. POTASSIUM CHLORIDE. [Suspect]
     Active Substance: POTASSIUM CHLORIDE
     Indication: PARENTERAL NUTRITION
     Dosage: FREQUENCY: ALTERNATE DAY.
     Route: 042
     Dates: start: 20200527
  19. MAGNESIUM SULPHATE [Suspect]
     Active Substance: MAGNESIUM SULFATE
     Indication: PARENTERAL NUTRITION
     Dosage: FREQUENCY: ALTERNATE DAY.
     Route: 042
     Dates: start: 20200527
  20. SODIUM CHLORIDE. [Suspect]
     Active Substance: SODIUM CHLORIDE
     Indication: PARENTERAL NUTRITION
     Dosage: FREQUENCY: ALTERNATE DAY.
     Route: 042
     Dates: start: 20200527
  21. SYNTHAMIN [Suspect]
     Active Substance: AMINO ACIDS
     Indication: SHORT-BOWEL SYNDROME
  22. POTASSIUM CHLORIDE. [Suspect]
     Active Substance: POTASSIUM CHLORIDE
     Indication: SHORT-BOWEL SYNDROME

REACTIONS (5)
  - Intestinal obstruction [Recovered/Resolved]
  - Feeling abnormal [Recovered/Resolved]
  - Liver function test abnormal [Recovered/Resolved]
  - Infection [Recovered/Resolved]
  - Bacteraemia [Recovered/Resolved]

NARRATIVE: CASE EVENT DATE: 20200715
